FAERS Safety Report 4574917-1 (Version None)
Quarter: 2005Q1

REPORT INFORMATION
  Report Type: 
  Country: None (occurrence: None)
  Receive Date: 20050208
  Receipt Date: 20040806
  Transmission Date: 20050727
  Serious: No
  Sender: FDA-Public Use
  Company Number: US-GLAXOSMITHKLINE-A0521313A

PATIENT
  Sex: Female

DRUGS (1)
  1. PAXIL CR [Suspect]
     Indication: ANXIETY
     Dosage: 12.5TAB PER DAY
     Route: 048
     Dates: start: 20040805

REACTIONS (2)
  - ANXIETY [None]
  - MEDICATION ERROR [None]
